FAERS Safety Report 6617051-9 (Version None)
Quarter: 2010Q1

REPORT INFORMATION
  Report Type: 
  Country: None (occurrence: None)
  Receive Date: 20100306
  Receipt Date: 20100223
  Transmission Date: 20100710
  Serious: Yes (Congenital Anomaly)
  Sender: FDA-Public Use
  Company Number: NL-JNJFOC-20100301639

PATIENT

DRUGS (1)
  1. LOPERAMIDE OXIDE [Suspect]
     Indication: DRUG EXPOSURE DURING PREGNANCY

REACTIONS (1)
  - CLEFT LIP AND PALATE [None]
